FAERS Safety Report 5509958-0 (Version None)
Quarter: 2007Q4

REPORT INFORMATION
  Report Type: 
  Country: None (occurrence: None)
  Receive Date: 20071106
  Receipt Date: 20071023
  Transmission Date: 20080405
  Serious: Yes (Life-Threatening)
  Sender: FDA-Public Use
  Company Number: 2007JP003883

PATIENT
  Age: 83 Year
  Sex: Female
  Weight: 46.5 kg

DRUGS (10)
  1. VESICARE [Suspect]
     Indication: HYPERTONIC BLADDER
     Dosage: 2.5 MG, /DAY,  ORAL; 5 MG, UID/QD,ORAL
     Route: 048
     Dates: start: 20070221, end: 20070306
  2. VESICARE [Suspect]
     Indication: HYPERTONIC BLADDER
     Dosage: 2.5 MG, /DAY,  ORAL; 5 MG, UID/QD,ORAL
     Route: 048
     Dates: start: 20070307
  3. MICARDIS [Suspect]
     Indication: HYPERTENSION
     Dosage: 40 MG, UID/QD, ORAL
     Route: 048
     Dates: start: 20030114, end: 20070819
  4. SPIRONOLACTONE [Suspect]
     Indication: CARDIAC FAILURE CHRONIC
     Dosage: 25 MG, UID/QD, ORAL
     Route: 048
     Dates: start: 20070801, end: 20070819
  5. ENALAPRIL MALEATE [Suspect]
     Indication: HYPERTENSION
     Dosage: 5 MG, IUD/QD,  ORAL
     Route: 048
     Dates: start: 20060426
  6. DIART (AZOSEMIDE) TABLET [Concomitant]
  7. PROMAC (POLAPREZINC) POWDER [Concomitant]
  8. DENOPAMINE (DENOPAMINE) TABLET [Concomitant]
  9. GOODMIN (BROTIZOLAM) TABLET [Concomitant]
  10. MINZAIN (TRIAZOLAM) TABLET [Concomitant]

REACTIONS (7)
  - CONDITION AGGRAVATED [None]
  - DEHYDRATION [None]
  - ELECTROLYTE IMBALANCE [None]
  - HYPERKALAEMIA [None]
  - LOSS OF CONSCIOUSNESS [None]
  - RENAL DISORDER [None]
  - SICK SINUS SYNDROME [None]
